FAERS Safety Report 9615331 (Version 2)
Quarter: 2013Q4

REPORT INFORMATION
  Report Type: Spontaneous
  Country: GB (occurrence: GB)
  Receive Date: 20131011
  Receipt Date: 20131011
  Transmission Date: 20140711
  Serious: Yes (Other)
  Sender: FDA-Public Use
  Company Number: GB-TEVA-390996ISR

PATIENT
  Age: 64 Year
  Sex: Male

DRUGS (3)
  1. MORPHINE [Suspect]
     Dosage: 60 MILLIGRAM DAILY; SLOW RELEASE 12 HOUR TABLETS. 30 MG, 2X/DAY, ONE IN MORNING AND ONE AT BEDTIME
  2. PREGABALIN [Suspect]
     Indication: SPINAL FRACTURE
     Dosage: 300 MILLIGRAM DAILY; 150 MG, 2X/DAY
     Dates: start: 201002
  3. PREGABALIN [Suspect]
     Indication: ABSCESS

REACTIONS (6)
  - Diabetes mellitus [Unknown]
  - Neuralgia [Unknown]
  - Anxiety [Unknown]
  - Intentional drug misuse [Unknown]
  - Withdrawal syndrome [Unknown]
  - Pain [Unknown]
